FAERS Safety Report 8544198-2 (Version None)
Quarter: 2012Q3

REPORT INFORMATION
  Report Type: 
  Country: None (occurrence: None)
  Receive Date: 20120727
  Receipt Date: 20120725
  Transmission Date: 20120928
  Serious: Yes (Other)
  Sender: FDA-Public Use
  Company Number: PHFR2012IE004168

PATIENT
  Sex: Female

DRUGS (2)
  1. CLOZARIL [Suspect]
     Dosage: FULL TREATMENT WITH CLOZARI
  2. CLOZARIL [Suspect]
     Indication: SCHIZOPHRENIA
     Dosage: 300 MG, QD
     Route: 048
     Dates: start: 20120411

REACTIONS (4)
  - MUSCULOSKELETAL STIFFNESS [None]
  - SEDATION [None]
  - CONSTIPATION [None]
  - FATIGUE [None]
